FAERS Safety Report 8286240-2 (Version None)
Quarter: 2012Q2

REPORT INFORMATION
  Report Type: 
  Country: None (occurrence: None)
  Receive Date: 20120416
  Receipt Date: 20120411
  Transmission Date: 20120825
  Serious: No
  Sender: FDA-Public Use
  Company Number: US-PFIZER INC-2012090626

PATIENT
  Sex: Female
  Weight: 72 kg

DRUGS (6)
  1. LISINOPRIL [Suspect]
     Indication: HYPERTENSION
     Dosage: 20 MG, 1X/DAY
     Route: 048
     Dates: start: 20120301, end: 20120411
  2. RANITIDINE [Suspect]
     Indication: DYSPEPSIA
     Dosage: 150 MG, 2X/DAY
     Route: 048
     Dates: start: 20120301, end: 20120411
  3. RANITIDINE [Suspect]
  4. NORVASC [Suspect]
     Indication: HYPERTENSION
     Dosage: 10 MG, 1X/DAY
     Route: 048
     Dates: end: 20120301
  5. PROTONIX [Suspect]
     Indication: DYSPEPSIA
     Dosage: 40 MG, 1X/DAY
     Route: 048
     Dates: start: 20091201, end: 20120301
  6. PROTONIX [Suspect]

REACTIONS (5)
  - INSOMNIA [None]
  - NAUSEA [None]
  - DIARRHOEA [None]
  - DYSPEPSIA [None]
  - COUGH [None]
